FAERS Safety Report 7249113-X (Version None)
Quarter: 2011Q1

REPORT INFORMATION
  Report Type: 
  Country: None (occurrence: None)
  Receive Date: 20110128
  Receipt Date: 20101125
  Transmission Date: 20110831
  Serious: Yes (Hospitalization)
  Sender: FDA-Public Use
  Company Number: FR-BAYER-2010-002048

PATIENT
  Sex: Female

DRUGS (1)
  1. IZILOX [Suspect]
     Dosage: 400 MG, ONCE
     Route: 048
     Dates: start: 20101001, end: 20101001

REACTIONS (1)
  - DRUG RASH WITH EOSINOPHILIA AND SYSTEMIC SYMPTOMS [None]
